FAERS Safety Report 7229374-3 (Version None)
Quarter: 2011Q1

REPORT INFORMATION
  Report Type: 
  Country: None (occurrence: None)
  Receive Date: 20110117
  Receipt Date: 20110107
  Transmission Date: 20110831
  Serious: Yes (Disabling, Other)
  Sender: FDA-Public Use
  Company Number: A0898379A

PATIENT
  Age: 57 Year
  Sex: Female
  Weight: 116.8 kg

DRUGS (17)
  1. AVANDIA [Suspect]
     Indication: TYPE 2 DIABETES MELLITUS
     Dosage: 4MG PER DAY
     Route: 048
     Dates: start: 20000101
  2. SYNTHROID [Concomitant]
  3. ATACAND [Concomitant]
  4. ALLOPURINOL [Concomitant]
  5. UNSPECIFIED MEDICATION [Concomitant]
  6. XANAX [Concomitant]
  7. CENTRUM SILVER [Concomitant]
  8. LASIX [Concomitant]
     Dosage: 20MG AS REQUIRED
  9. PEPCID [Concomitant]
     Dosage: 20MG TWICE PER DAY
  10. MULTIVITAMIN [Concomitant]
  11. ATENOLOL [Concomitant]
  12. LOPID [Concomitant]
  13. ASPIRIN [Concomitant]
  14. CHROMAGEN [Concomitant]
  15. PRILOSEC [Concomitant]
     Dosage: 40MG TWICE PER DAY
  16. ZOCOR [Concomitant]
  17. FLEXERIL [Concomitant]

REACTIONS (8)
  - ANAEMIA [None]
  - FATIGUE [None]
  - HAEMATOCRIT DECREASED [None]
  - HAEMOGLOBIN DECREASED [None]
  - DIABETES MELLITUS [None]
  - DYSPNOEA [None]
  - WEIGHT DECREASED [None]
  - WEIGHT INCREASED [None]
